FAERS Safety Report 5056817-6 (Version None)
Quarter: 2006Q2

REPORT INFORMATION
  Report Type: 
  Country: None (occurrence: None)
  Receive Date: 20060619
  Receipt Date: 20050616
  Transmission Date: 20061013
  Serious: Yes (Life-Threatening)
  Sender: FDA-Public Use
  Company Number: WAES 0506USA02648

PATIENT
  Age: 63 Year
  Sex: Female
  Weight: 112.9457 kg

DRUGS (5)
  1. COZAAR [Suspect]
     Indication: PROPHYLAXIS
     Dosage: 100 MG/DAILY/PO
     Route: 048
     Dates: start: 20040701, end: 20050607
  2. AMARYL [Concomitant]
  3. LASIX [Concomitant]
  4. ZOLOFT [Concomitant]
  5. METFORMIN [Concomitant]

REACTIONS (4)
  - DYSPEPSIA [None]
  - DYSPNOEA [None]
  - GASTRITIS [None]
  - PANIC DISORDER [None]
